FAERS Safety Report 7407417-1 (Version None)
Quarter: 2011Q2

REPORT INFORMATION
  Report Type: 
  Country: None (occurrence: None)
  Receive Date: 20110411
  Receipt Date: 20110404
  Transmission Date: 20111010
  Serious: Yes (Other)
  Sender: FDA-Public Use
  Company Number: US-AMGEN-USASP2011018090

PATIENT
  Age: 45 Year
  Sex: Male

DRUGS (1)
  1. NPLATE [Suspect]
     Indication: IDIOPATHIC THROMBOCYTOPENIC PURPURA
     Dosage: 1 A?G/KG, UNK
     Dates: start: 20100330, end: 20101019

REACTIONS (4)
  - MEGAKARYOCYTES ABNORMAL [None]
  - ERYTHROID SERIES ABNORMAL [None]
  - BONE MARROW RETICULIN FIBROSIS [None]
  - THROMBOCYTOPENIA [None]
